FAERS Safety Report 24622724 (Version 2)
Quarter: 2025Q2

REPORT INFORMATION
  Report Type: Spontaneous
  Country: US (occurrence: US)
  Receive Date: 20241115
  Receipt Date: 20250416
  Transmission Date: 20250716
  Serious: No
  Sender: ALEXION PHARMACEUTICALS
  Company Number: US-AstraZeneca-CH-00746415AP

PATIENT

DRUGS (1)
  1. BREZTRI [Suspect]
     Active Substance: BUDESONIDE\FORMOTEROL\GLYCOPYRROLATE

REACTIONS (6)
  - Device defective [Unknown]
  - Product dose omission issue [Unknown]
  - Dyspnoea [Unknown]
  - Aphonia [Unknown]
  - Device use issue [Unknown]
  - Incorrect dose administered [Unknown]
